FAERS Safety Report 5838666-1 (Version None)
Quarter: 2008Q3

REPORT INFORMATION
  Report Type: 
  Country: None (occurrence: None)
  Receive Date: 20080808
  Receipt Date: 20080731
  Transmission Date: 20090109
  Serious: Yes (Death, Other)
  Sender: FDA-Public Use
  Company Number: JP-MERCK-0807USA01880

PATIENT
  Age: 60 Year
  Sex: Female

DRUGS (3)
  1. PEPCID RPD [Suspect]
     Route: 048
     Dates: start: 20070501, end: 20070601
  2. SEDAPRAN [Suspect]
     Indication: INSOMNIA
     Route: 048
     Dates: start: 20070602
  3. SEDAPRAN [Suspect]
     Indication: MENTAL DISORDER
     Route: 048
     Dates: start: 20070602

REACTIONS (4)
  - ANAPHYLACTIC REACTION [None]
  - LIVER DISORDER [None]
  - SEPSIS [None]
  - TOXIC EPIDERMAL NECROLYSIS [None]
